FAERS Safety Report 7331501-4 (Version None)
Quarter: 2011Q1

REPORT INFORMATION
  Report Type: 
  Country: None (occurrence: None)
  Receive Date: 20110304
  Receipt Date: 20110223
  Transmission Date: 20110831
  Serious: No
  Sender: FDA-Public Use
  Company Number: US-JNJFOC-20110107406

PATIENT
  Age: 50 Year
  Sex: Male
  Weight: 70.31 kg

DRUGS (3)
  1. KLONOPIN [Concomitant]
     Indication: ILL-DEFINED DISORDER
     Route: 048
  2. NEURONTIN [Concomitant]
     Indication: ILL-DEFINED DISORDER
     Route: 048
  3. INVEGA SUSTENNA [Suspect]
     Indication: SCHIZOPHRENIA
     Dosage: 117 MG+156 MG
     Route: 030

REACTIONS (3)
  - OVERDOSE [None]
  - INCORRECT DOSE ADMINISTERED [None]
  - PRODUCT QUALITY ISSUE [None]
